FAERS Safety Report 4630859-4 (Version None)
Quarter: 2005Q2

REPORT INFORMATION
  Report Type: 
  Country: None (occurrence: None)
  Receive Date: 20050406
  Receipt Date: 20050331
  Transmission Date: 20051028
  Serious: Yes (Death)
  Sender: FDA-Public Use
  Company Number: 2005US-00500

PATIENT
  Age: 54 Year
  Sex: Female

DRUGS (1)
  1. MORPHINE SULFATE [Suspect]
     Indication: PAIN PROPHYLAXIS

REACTIONS (3)
  - COMA [None]
  - RESPIRATORY ARREST [None]
  - RESPIRATORY FAILURE [None]
